FAERS Safety Report 12389330 (Version 2)
Quarter: 2016Q2

REPORT INFORMATION
  Report Type: Report from Study
  Country: BR (occurrence: BR)
  Receive Date: 20160520
  Receipt Date: 20160524
  Transmission Date: 20160815
  Serious: Yes (Hospitalization)
  Sender: FDA-Public Use
  Company Number: PHHO2016BR007222

PATIENT
  Age: 45 Year
  Sex: Female
  Weight: 68 kg

DRUGS (4)
  1. GALVUS [Concomitant]
     Active Substance: VILDAGLIPTIN
     Indication: DIABETES MELLITUS
     Dosage: UNK
     Route: 065
     Dates: start: 20151204, end: 20160505
  2. SOM230 [Suspect]
     Active Substance: PASIREOTIDE
     Indication: NEOPLASM
     Dosage: 60 MG, UNK
     Route: 030
     Dates: start: 20150226, end: 20160310
  3. LEVONORGESTREL/ETHINYLESTRADIOL ACTAVIS [Concomitant]
     Indication: ORAL CONTRACEPTION
     Dosage: UNK
     Route: 065
     Dates: start: 20160317, end: 20160505
  4. LOSARTAN. [Concomitant]
     Active Substance: LOSARTAN
     Indication: HYPERTENSION
     Dosage: 50 MG, BID
     Route: 048
     Dates: start: 20150717

REACTIONS (1)
  - Pleural effusion [Recovering/Resolving]

NARRATIVE: CASE EVENT DATE: 20160508
